FAERS Safety Report 18184547 (Version 2)
Quarter: 2021Q1

REPORT INFORMATION
  Report Type: Other
  Country: US (occurrence: US)
  Receive Date: 20200824
  Receipt Date: 20210302
  Transmission Date: 20210419
  Serious: Yes (Other)
  Sender: FDA-Public Use
  Company Number: US-ROCHE-2657862

PATIENT
  Age: 60 Year
  Sex: Female
  Weight: 79.9 kg

DRUGS (7)
  1. KADCYLA [Suspect]
     Active Substance: ADO-TRASTUZUMAB EMTANSINE
     Indication: BREAST CANCER FEMALE
  2. PERJETA [Suspect]
     Active Substance: PERTUZUMAB
     Indication: INFLAMMATORY CARCINOMA OF THE BREAST
     Dosage: ONGOING: YES, DATE OF SERVICE:06?DEC?2020,24?JAN?2020,14?FEB?2020
     Route: 041
     Dates: start: 20200710
  3. PHESGO [Suspect]
     Active Substance: HYALURONIDASE-ZZXF\PERTUZUMAB\TRASTUZUMAB
     Indication: BREAST CANCER METASTATIC
     Route: 058
     Dates: start: 20210106
  4. PERJETA [Suspect]
     Active Substance: PERTUZUMAB
     Indication: BREAST CANCER FEMALE
     Dosage: ONGOING: NO
     Route: 041
     Dates: end: 202004
  5. HERCEPTIN [Suspect]
     Active Substance: TRASTUZUMAB
     Indication: INFLAMMATORY CARCINOMA OF THE BREAST
     Dosage: ONGOING: YES
     Route: 041
     Dates: start: 20200710
  6. HERCEPTIN [Suspect]
     Active Substance: TRASTUZUMAB
     Indication: BREAST CANCER FEMALE
  7. KADCYLA [Suspect]
     Active Substance: ADO-TRASTUZUMAB EMTANSINE
     Indication: INFLAMMATORY CARCINOMA OF THE BREAST
     Dosage: ONGOING: NO, DATE OF SERVICE: 06?DEC?2019,24?JAN?2020,14?FEB?2020
     Route: 041
     Dates: start: 201909, end: 202004

REACTIONS (8)
  - Diarrhoea [Not Recovered/Not Resolved]
  - Multiple sclerosis [Unknown]
  - Neuropathy peripheral [Not Recovered/Not Resolved]
  - Erythema [Recovered/Resolved]
  - Injection site urticaria [Recovered/Resolved]
  - Intentional product use issue [Unknown]
  - Fatigue [Recovering/Resolving]
  - Off label use [Unknown]

NARRATIVE: CASE EVENT DATE: 20210106
